FAERS Safety Report 13920343 (Version 5)
Quarter: 2017Q4

REPORT INFORMATION
  Report Type: Report from Study
  Country: None (occurrence: JP)
  Receive Date: 20170830
  Receipt Date: 20171017
  Transmission Date: 20180320
  Serious: Yes (Life-Threatening, Hospitalization)
  Sender: FDA-Public Use
  Company Number: JP-ABBVIE-17K-087-2086197-00

PATIENT
  Age: 52 Year
  Sex: Male
  Weight: 61 kg

DRUGS (3)
  1. DUODOPA [Suspect]
     Active Substance: CARBIDOPA\LEVODOPA
     Indication: PARKINSON^S DISEASE
     Dosage: MD: 8 ML, CD: 1.7 ML/HR X 15 HR
     Route: 050
     Dates: start: 20170619, end: 20170622
  2. DUODOPA [Suspect]
     Active Substance: CARBIDOPA\LEVODOPA
     Dosage: MD: 8 ML, CD: 1.7 ML/HR X 15 HR
     Route: 050
     Dates: start: 20170622
  3. TRIHEXYPHENIDYL HYDROCHLORIDE. [Concomitant]
     Active Substance: TRIHEXYPHENIDYL HYDROCHLORIDE
     Indication: PARKINSON^S DISEASE
     Route: 048
     Dates: end: 20170628

REACTIONS (3)
  - Suicide attempt [Recovered/Resolved]
  - Intentional overdose [Recovered/Resolved]
  - Intentional self-injury [Recovered/Resolved]

NARRATIVE: CASE EVENT DATE: 20170826
